FAERS Safety Report 7117013-1 (Version None)
Quarter: 2010Q4

REPORT INFORMATION
  Report Type: 
  Country: None (occurrence: None)
  Receive Date: 20101115
  Receipt Date: 20101102
  Transmission Date: 20110411
  Serious: Yes (Death)
  Sender: FDA-Public Use
  Company Number: MC201000337

PATIENT

DRUGS (1)
  1. ANGIOMAX [Suspect]
     Indication: PROPHYLAXIS
     Dosage: 2 ML, HR

REACTIONS (1)
  - OFF LABEL USE [None]
